FAERS Safety Report 6248207-5 (Version None)
Quarter: 2009Q2

REPORT INFORMATION
  Report Type: 
  Country: None (occurrence: None)
  Receive Date: 20090629
  Receipt Date: 20080612
  Transmission Date: 20091009
  Serious: No
  Sender: FDA-Public Use
  Company Number: A0732911A

PATIENT
  Age: 60 Year
  Sex: Female

DRUGS (5)
  1. ALBUTEROL [Suspect]
     Indication: CHRONIC OBSTRUCTIVE PULMONARY DISEASE
     Dosage: 2PUFF TWICE PER DAY
     Route: 055
     Dates: start: 20020101
  2. THEOPHYLLINE [Concomitant]
  3. BREATHEZE [Concomitant]
  4. FLOVENT [Concomitant]
  5. VENTOLIN [Concomitant]
     Route: 055

REACTIONS (2)
  - DRUG INEFFECTIVE [None]
  - FEELING JITTERY [None]
